FAERS Safety Report 20917604 (Version 2)
Quarter: 2022Q2

REPORT INFORMATION
  Report Type: Report from Study
  Country: US (occurrence: US)
  Receive Date: 20220606
  Receipt Date: 20220627
  Transmission Date: 20220721
  Serious: Yes (Other)
  Sender: FDA-Public Use
  Company Number: US-GILEAD-2022-0583759

PATIENT
  Age: 26 Year
  Sex: Male

DRUGS (4)
  1. AZTREONAM LYSINE [Suspect]
     Active Substance: AZTREONAM LYSINE
     Indication: Cystic fibrosis
     Dosage: 75 MG, TID FOR 28 DAYS
     Route: 055
     Dates: start: 20160422, end: 20220601
  2. TOBRAMYCIN [Concomitant]
     Active Substance: TOBRAMYCIN
  3. KITABIS PAK [Concomitant]
     Active Substance: TOBRAMYCIN
  4. PULMOZYME [Concomitant]
     Active Substance: DORNASE ALFA

REACTIONS (1)
  - Lung transplant [Unknown]
